FAERS Safety Report 6203732-8 (Version None)
Quarter: 2009Q2

REPORT INFORMATION
  Report Type: 
  Country: None (occurrence: None)
  Receive Date: 20090526
  Receipt Date: 20090526
  Transmission Date: 20091009
  Serious: Yes (Death)
  Sender: FDA-Public Use
  Company Number: None

PATIENT
  Age: 86 Year
  Sex: Female
  Weight: 68.0396 kg

DRUGS (1)
  1. RISPERIDONE [Suspect]
     Indication: SCHIZOPHRENIA, PARANOID TYPE
     Dosage: 3 MG 1X24 HOURS PO
     Route: 048
     Dates: start: 20080718, end: 20090426

REACTIONS (10)
  - ABDOMINAL DISCOMFORT [None]
  - ELECTROLYTE IMBALANCE [None]
  - FEELING ABNORMAL [None]
  - FLAT AFFECT [None]
  - FLUID RETENTION [None]
  - HELICOBACTER INFECTION [None]
  - MYOCARDIAL INFARCTION [None]
  - OVERDOSE [None]
  - SUDDEN DEATH [None]
  - WEIGHT DECREASED [None]
